FAERS Safety Report 24695670 (Version 2)
Quarter: 2025Q1

REPORT INFORMATION
  Report Type: Spontaneous
  Country: GB (occurrence: GB)
  Receive Date: 20241204
  Receipt Date: 20250214
  Transmission Date: 20250409
  Serious: Yes (Other)
  Sender: CELLTRION
  Company Number: GB-CELLTRION INC.-2024GB030350

PATIENT

DRUGS (1)
  1. YUFLYMA [Suspect]
     Active Substance: ADALIMUMAB-AATY
     Indication: Juvenile idiopathic arthritis
     Dosage: YUFLYMA (ADALIMUMAB) 40MG PEN / ONE INJECTION EVERY TWO WEEKS
     Route: 058
     Dates: start: 202310

REACTIONS (4)
  - Surgery [Unknown]
  - Product distribution issue [Unknown]
  - Therapy interrupted [Unknown]
  - Intentional dose omission [Unknown]
